FAERS Safety Report 8553933-9 (Version None)
Quarter: 2012Q3

REPORT INFORMATION
  Report Type: 
  Country: None (occurrence: None)
  Receive Date: 20120731
  Receipt Date: 20101029
  Transmission Date: 20120928
  Serious: Yes (Other)
  Sender: FDA-Public Use
  Company Number: US-BAYER-201040915NA

PATIENT
  Age: 21 Year
  Sex: Female
  Weight: 147.73 kg

DRUGS (4)
  1. SYNTHROID [Concomitant]
     Indication: HYPOTHYROIDISM
     Dosage: 50 ?G (DAILY DOSE), QD,
     Dates: start: 20081001
  2. YASMIN [Suspect]
     Indication: MENSTRUAL CYCLE MANAGEMENT
     Route: 048
     Dates: start: 20090801, end: 20090901
  3. YASMIN [Suspect]
     Indication: CONTRACEPTION
  4. CELEXA [Concomitant]
     Indication: PANIC ATTACK
     Dates: start: 20081101

REACTIONS (9)
  - DIARRHOEA [None]
  - HEPATIC STEATOSIS [None]
  - CHOLELITHIASIS [None]
  - CHEST PAIN [None]
  - ABDOMINAL PAIN UPPER [None]
  - CHOLECYSTITIS ACUTE [None]
  - HYPERTENSION [None]
  - MUSCULOSKELETAL PAIN [None]
  - NAUSEA [None]
